FAERS Safety Report 6519187-X (Version None)
Quarter: 2009Q4

REPORT INFORMATION
  Report Type: 
  Country: None (occurrence: None)
  Receive Date: 20091224
  Receipt Date: 20091224
  Transmission Date: 20100525
  Serious: Yes (Life-Threatening)
  Sender: FDA-Public Use
  Company Number: None

PATIENT
  Age: 31 Day
  Sex: Female
  Weight: 86.1834 kg

DRUGS (2)
  1. LEXAPRO [Suspect]
     Indication: ANXIETY DISORDER
     Dosage: 10 MILIGRAMS ONCE DAILY PO
     Route: 048
     Dates: start: 20090927, end: 20090930
  2. LEXAPRO [Suspect]
     Indication: DEPRESSION
     Dosage: 10 MILIGRAMS ONCE DAILY PO
     Route: 048
     Dates: start: 20090927, end: 20090930

REACTIONS (11)
  - CRYING [None]
  - DEPRESSION [None]
  - DIARRHOEA [None]
  - DISTURBANCE IN ATTENTION [None]
  - EMOTIONAL DISORDER [None]
  - FEAR [None]
  - FEELING ABNORMAL [None]
  - GASTROINTESTINAL DISORDER [None]
  - MANIA [None]
  - RESTLESSNESS [None]
  - WEIGHT DECREASED [None]
